FAERS Safety Report 4659595-5 (Version None)
Quarter: 2005Q2

REPORT INFORMATION
  Report Type: 
  Country: None (occurrence: None)
  Receive Date: 20050411
  Receipt Date: 20050127
  Transmission Date: 20051028
  Serious: Yes (Other)
  Sender: FDA-Public Use
  Company Number: 356282

PATIENT
  Age: 48 Year
  Sex: Male

DRUGS (1)
  1. FUZEON [Suspect]
     Indication: DRUG USE FOR UNKNOWN INDICATION
     Dosage: 90 MG 2 PER DAY SUBCUTANEOUS
     Route: 058
     Dates: start: 20010101

REACTIONS (4)
  - INJECTION SITE REACTION [None]
  - INJECTION SITE ULCER [None]
  - MEDICATION ERROR [None]
  - NO ADVERSE EFFECT [None]
